FAERS Safety Report 8027585-0 (Version None)
Quarter: 2012Q1

REPORT INFORMATION
  Report Type: 
  Country: None (occurrence: None)
  Receive Date: 20120104
  Receipt Date: 20111215
  Transmission Date: 20120608
  Serious: Yes (Hospitalization, Other)
  Sender: FDA-Public Use
  Company Number: JPI-P-018647

PATIENT
  Age: 33 Year
  Sex: Female
  Weight: 81.6475 kg

DRUGS (15)
  1. NORGESTIMATE AND ETHINYL ESTRADIOL [Concomitant]
  2. VENLAFAXINE HYDROCHLORIDE [Concomitant]
  3. FLUTICASONE PROPIONATE [Concomitant]
  4. ALPRAZOLAM [Concomitant]
  5. ALBUTEROL [Concomitant]
  6. DESLORATION [Concomitant]
  7. PROMETHAZINE [Concomitant]
  8. XYREM [Suspect]
     Indication: NARCOLEPSY
     Dosage: ORAL; 9 GM (4.5 GM, 2 IN 1 D), ORAL; 4.5 GM (4.5 GM, 1 IN  1 D),ORAL
     Route: 048
     Dates: start: 20100217
  9. RIZATRIPTAN BENZOATE [Concomitant]
  10. OMEPRZOLE [Concomitant]
  11. ARMODAFINIL [Concomitant]
  12. LIDOCAINE [Concomitant]
  13. ACYCLOVIR [Concomitant]
  14. TOPIRAMATE [Suspect]
     Indication: MIGRAINE
     Dates: end: 20101201
  15. DEXTROAMPHETAMINE [Concomitant]

REACTIONS (11)
  - METABOLIC ACIDOSIS [None]
  - SOMNOLENCE [None]
  - MATERNAL EXPOSURE DURING PREGNANCY [None]
  - FEELING OF DESPAIR [None]
  - SPEECH DISORDER [None]
  - EMOTIONAL DISORDER [None]
  - COMMUNICATION DISORDER [None]
  - AGGRESSION [None]
  - PREGNANCY [None]
  - CONVULSION [None]
  - AMNESIA [None]
